FAERS Safety Report 9868255 (Version 2)
Quarter: 2014Q1

REPORT INFORMATION
  Report Type: Spontaneous
  Country: IT (occurrence: IT)
  Receive Date: 20140204
  Receipt Date: 20140324
  Transmission Date: 20141002
  Serious: Yes (Hospitalization, Other)
  Sender: FDA-Public Use
  Company Number: IT-BRISTOL-MYERS SQUIBB COMPANY-20077772

PATIENT
  Age: 78 Year
  Sex: Male

DRUGS (6)
  1. COUMADIN TABS 5 MG [Suspect]
     Indication: ATRIAL FIBRILLATION
     Route: 048
     Dates: start: 20030101, end: 20131204
  2. ENAPREN [Concomitant]
     Dosage: TABS
  3. METOPROLOL [Concomitant]
     Dosage: TABS
  4. OMNIC [Concomitant]
     Dosage: CAPS
  5. EUTIROX [Concomitant]
     Dosage: TABS
  6. LEXOTAN [Concomitant]
     Dosage: CAPS

REACTIONS (2)
  - Oedema peripheral [Recovering/Resolving]
  - Haematoma [Recovering/Resolving]
